FAERS Safety Report 4864447-1 (Version None)
Quarter: 2005Q4

REPORT INFORMATION
  Report Type: 
  Country: None (occurrence: None)
  Receive Date: 20051024
  Receipt Date: 20051024
  Transmission Date: 20060501
  Serious: Yes (Life-Threatening, Hospitalization)
  Sender: FDA-Public Use
  Company Number: None

PATIENT
  Age: 34 Year
  Sex: Male
  Weight: 53.0709 kg

DRUGS (15)
  1. LEUKINE [Suspect]
     Indication: IMMUNISATION
     Dosage: 250 MCG  2 DOSES IM
     Route: 030
     Dates: start: 20050819, end: 20050919
  2. DILANTIN [Concomitant]
  3. SYNTHROID [Concomitant]
  4. DEPAKOTE [Concomitant]
  5. PROPRANOLOL [Concomitant]
  6. PAXIL [Concomitant]
  7. PRILOSEC [Concomitant]
  8. LORTAB [Concomitant]
  9. MS CONTIN [Concomitant]
  10. ZITHROMAX [Concomitant]
  11. KALETRA [Concomitant]
  12. VIREAD [Concomitant]
  13. REYATAZ [Concomitant]
  14. BACTRIM DS [Concomitant]
  15. CLONAZEPAM [Concomitant]

REACTIONS (3)
  - ASTHENIA [None]
  - HYPOKALAEMIA [None]
  - NAUSEA [None]
